FAERS Safety Report 5237479-1 (Version None)
Quarter: 2007Q1

REPORT INFORMATION
  Report Type: 
  Country: None (occurrence: None)
  Receive Date: 20070213
  Receipt Date: 20070201
  Transmission Date: 20070707
  Serious: Yes (Death)
  Sender: FDA-Public Use
  Company Number: NO-ELI_LILLY_AND_COMPANY-NO200702000284

PATIENT
  Age: 35 Year
  Sex: Male

DRUGS (5)
  1. CIALIS [Suspect]
     Dosage: 20 MG, UNKNOWN
     Route: 048
  2. TETRAHYDROCANNABINOL [Concomitant]
  3. DIAZEPAM [Concomitant]
  4. ALPRAZOLAM [Concomitant]
  5. SUBUTEX [Concomitant]
     Dosage: 8 MG, UNK
     Route: 048

REACTIONS (2)
  - DEATH [None]
  - MYOCARDIAL INFARCTION [None]
